FAERS Safety Report 6881377-4 (Version None)
Quarter: 2010Q3

REPORT INFORMATION
  Report Type: 
  Country: None (occurrence: None)
  Receive Date: 20100728
  Receipt Date: 20100728
  Transmission Date: 20110219
  Serious: Yes (Life-Threatening, Hospitalization)
  Sender: FDA-Public Use
  Company Number: None

PATIENT
  Age: 26 Year
  Sex: Female
  Weight: 58.9676 kg

DRUGS (1)
  1. YASMIN [Suspect]
     Indication: MUSCLE SPASMS
     Dosage: 1 TABLET/DAY PO
     Route: 048
     Dates: start: 20011115, end: 20011230

REACTIONS (2)
  - HAEMORRHAGE [None]
  - PULMONARY EMBOLISM [None]
